FAERS Safety Report 4847981-X (Version None)
Quarter: 2005Q4

REPORT INFORMATION
  Report Type: 
  Country: None (occurrence: None)
  Receive Date: 20051206
  Receipt Date: 20051206
  Transmission Date: 20060501
  Serious: Yes (Life-Threatening, Hospitalization, Other)
  Sender: FDA-Public Use
  Company Number: None

PATIENT
  Age: 50 Year
  Sex: Male
  Weight: 77.1115 kg

DRUGS (2)
  1. DOXYCYCLINE [Suspect]
     Indication: PNEUMONIA
     Dosage: 1 TABLET  2 DAILY OTHER
     Dates: start: 20051111, end: 20051120
  2. PRILOSEC [Suspect]
     Indication: DYSPEPSIA
     Dosage: 1 TABLET ONCE OTHER
     Dates: start: 20051106, end: 20051109

REACTIONS (8)
  - BLINDNESS [None]
  - BLOOD PRESSURE INCREASED [None]
  - EPILEPSY [None]
  - HEADACHE [None]
  - INFECTION [None]
  - MEMORY IMPAIRMENT [None]
  - PNEUMONIA [None]
  - THROMBOSIS [None]
